FAERS Safety Report 8853637 (Version 2)
Quarter: 2013Q2

REPORT INFORMATION
  Report Type: Report from Study
  Country: JP (occurrence: JP)
  Receive Date: 20121023
  Receipt Date: 20130517
  Transmission Date: 20140414
  Serious: No
  Sender: FDA-Public Use
  Company Number: JP-009507513-1210JPN008798

PATIENT
  Age: 53 Year
  Sex: Male
  Weight: 69 kg

DRUGS (21)
  1. PEGINTRON [Suspect]
     Indication: CHRONIC HEPATITIS C
     Dosage: 1.5 MICROGRAM PER KILOGRAM, QW
     Route: 058
     Dates: start: 20120711
  2. REBETOL [Suspect]
     Indication: CHRONIC HEPATITIS C
     Dosage: 600 MG, QD
     Route: 048
     Dates: start: 20120711, end: 20120712
  3. REBETOL [Suspect]
     Dosage: 400 MG, QD
     Route: 048
     Dates: start: 20120713, end: 20120806
  4. REBETOL [Suspect]
     Dosage: 200 MG, QD
     Route: 048
     Dates: start: 20120807, end: 20120820
  5. REBETOL [Suspect]
     Dosage: 200 MG, QD
     Route: 048
     Dates: start: 20120911
  6. TELAVIC [Suspect]
     Indication: CHRONIC HEPATITIS C
     Dosage: 1500 MG, QD
     Route: 048
     Dates: start: 20120711, end: 20121001
  7. OMEPRAL [Concomitant]
     Indication: GASTRIC ULCER
     Dosage: 20 MG, QD
     Route: 048
  8. SPIRIVA [Concomitant]
     Indication: BRONCHITIS
     Dosage: 2 DF, QD
     Route: 055
  9. MUCODYNE [Concomitant]
     Indication: BRONCHITIS
     Dosage: 1500 MG, QD
     Route: 048
  10. MECOBALAMIN [Concomitant]
     Indication: DIABETES MELLITUS
     Dosage: 1500 MICROGRAM, QD
     Route: 048
  11. BASEN OD [Concomitant]
     Indication: DIABETES MELLITUS
     Dosage: 0.9 MG, QD
     Route: 048
  12. LENDORMIN D [Concomitant]
     Indication: INSOMNIA
     Dosage: 0.25 MG, QD
     Route: 048
     Dates: end: 20120715
  13. ROZEREM [Concomitant]
     Indication: INSOMNIA
     Dosage: 8 MG, QD
     Route: 048
  14. EURODIN (ESTAZOLAM) [Concomitant]
     Indication: INSOMNIA
     Dosage: 1 MG, QD
     Route: 048
     Dates: start: 20120714, end: 20120717
  15. ROHYPNOL [Concomitant]
     Indication: INSOMNIA
     Dosage: 1 MG, QD
     Route: 048
     Dates: start: 20120718, end: 20120718
  16. ROHYPNOL [Concomitant]
     Dosage: 0.5 MG, QD
     Route: 048
     Dates: start: 20120719
  17. ROHYPNOL [Concomitant]
     Dosage: UNK, PRN
     Route: 048
  18. ZYLORIC [Concomitant]
     Indication: PROPHYLAXIS
     Dosage: 200 MG, QD
     Route: 048
  19. ALLELOCK [Concomitant]
     Indication: PROPHYLAXIS
     Dosage: 10 MG, QD
     Route: 048
  20. DEXALTIN [Concomitant]
     Indication: PROPHYLAXIS
     Route: 061
  21. ANTEBATE [Concomitant]
     Indication: PROPHYLAXIS
     Dosage: UNK
     Route: 061

REACTIONS (1)
  - Anaemia [Not Recovered/Not Resolved]
